FAERS Safety Report 9449252 (Version 2)
Quarter: 2013Q3

REPORT INFORMATION
  Report Type: Spontaneous
  Country: US (occurrence: US)
  Receive Date: 20130808
  Receipt Date: 20130815
  Transmission Date: 20140515
  Serious: Yes (Hospitalization)
  Sender: FDA-Public Use
  Company Number: US-GLAXOSMITHKLINE-A1036842A

PATIENT
  Age: 52 Year
  Sex: Male

DRUGS (1)
  1. VOTRIENT [Suspect]
     Indication: SOFT TISSUE CANCER
     Dosage: 400MG TWICE PER DAY
     Route: 065

REACTIONS (4)
  - Stent placement [Recovered/Resolved]
  - Coma [Recovered/Resolved]
  - Poor peripheral circulation [Recovered/Resolved]
  - Treatment noncompliance [Recovered/Resolved]
